FAERS Safety Report 9982299 (Version 1)
Quarter: 2014Q1

REPORT INFORMATION
  Report Type: Report from Study
  Country: US (occurrence: US)
  Receive Date: 20140307
  Receipt Date: 20140307
  Transmission Date: 20141002
  Serious: No
  Sender: FDA-Public Use
  Company Number: US-ABBVIE-13P-163-1179119-00

PATIENT
  Age: 62 Year
  Sex: Female

DRUGS (5)
  1. HUMIRA [Suspect]
     Indication: PSORIASIS
     Dates: start: 20130903, end: 201311
  2. ALENDRONATE [Concomitant]
     Indication: OSTEOPOROSIS
  3. PIOGLITAZONE [Concomitant]
     Indication: BLOOD GLUCOSE
     Dosage: ONE PILL
  4. ENALAPRIL [Concomitant]
     Indication: BLOOD PRESSURE
  5. GLYBURIDE [Concomitant]
     Indication: BLOOD GLUCOSE

REACTIONS (1)
  - Bone pain [Not Recovered/Not Resolved]
